FAERS Safety Report 19950182 (Version 1)
Quarter: 2021Q4

REPORT INFORMATION
  Report Type: Spontaneous
  Country: ES (occurrence: ES)
  Receive Date: 20211013
  Receipt Date: 20211013
  Transmission Date: 20220303
  Serious: Yes (Other)
  Sender: FDA-Public Use
  Company Number: None

PATIENT
  Age: 63 Year
  Sex: Male

DRUGS (1)
  1. FENTANYL TRANSDERMAL SYSTEM [Suspect]
     Active Substance: FENTANYL
     Dosage: 75 MICROGRAMS / HOUR, 5 PATCHES
     Route: 062
     Dates: start: 20150527

REACTIONS (2)
  - Drug dependence [Not Recovered/Not Resolved]
  - Behavioural addiction [Not Recovered/Not Resolved]

NARRATIVE: CASE EVENT DATE: 20200821
